FAERS Safety Report 8239778-8 (Version None)
Quarter: 2012Q1

REPORT INFORMATION
  Report Type: 
  Country: None (occurrence: None)
  Receive Date: 20120309
  Receipt Date: 20110329
  Transmission Date: 20120608
  Serious: Yes (Other)
  Sender: FDA-Public Use
  Company Number: PHHY2010US67455

PATIENT
  Age: 48 Year
  Sex: Male

DRUGS (6)
  1. ACETAMINOPHEN [Concomitant]
  2. EXTAVIA [Suspect]
     Indication: MULTIPLE SCLEROSIS
     Dosage: 0.25 MG, QOD, SUBCUTANEOUS ; 0.3 MG, QOD, SUBCUTANEOUS
     Route: 058
     Dates: start: 20100214
  3. PROZAC [Concomitant]
  4. IMITREX ^CERENEX^ (SUMATRIPTAN SUCCINATE) [Concomitant]
  5. NEURONTIN (GABAPENTIN) [Concomitant]
  6. ALEVE /00256202/ (NAPROXEN SODIUM) [Concomitant]

REACTIONS (10)
  - WEIGHT DECREASED [None]
  - DEPRESSION [None]
  - IMPAIRED HEALING [None]
  - DIZZINESS [None]
  - HYPOAESTHESIA [None]
  - DECREASED APPETITE [None]
  - MULTIPLE SCLEROSIS RELAPSE [None]
  - INSOMNIA [None]
  - FEELING ABNORMAL [None]
  - CONTUSION [None]
